FAERS Safety Report 21268694 (Version 1)
Quarter: 2022Q3

REPORT INFORMATION
  Report Type: Spontaneous
  Country: US (occurrence: US)
  Receive Date: 20220830
  Receipt Date: 20220830
  Transmission Date: 20221027
  Serious: No
  Sender: FDA-Public Use
  Company Number: US-ESPERION THERAPEUTICS, INC-2022USA01266

PATIENT
  Age: 80 Year
  Sex: Female
  Weight: 60.317 kg

DRUGS (4)
  1. NEXLETOL [Suspect]
     Active Substance: BEMPEDOIC ACID
     Indication: Low density lipoprotein increased
     Dosage: 180 MILLIGRAM, QD
     Route: 048
     Dates: start: 20220116, end: 20220201
  2. NEXLETOL [Suspect]
     Active Substance: BEMPEDOIC ACID
     Dosage: 1/2 TABLET, QD
     Route: 048
     Dates: start: 20220206, end: 20220301
  3. TRAZODONE [Concomitant]
     Active Substance: TRAZODONE HYDROCHLORIDE
     Dosage: UNK
     Route: 065
  4. BYSTOLIC [Concomitant]
     Active Substance: NEBIVOLOL HYDROCHLORIDE
     Dosage: 5 MILLIGRAM
     Route: 065

REACTIONS (5)
  - Arthralgia [Recovering/Resolving]
  - Joint noise [Recovering/Resolving]
  - Wrong technique in product usage process [Recovered/Resolved]
  - Pain in extremity [Recovering/Resolving]
  - Back pain [Recovering/Resolving]

NARRATIVE: CASE EVENT DATE: 20220101
